FAERS Safety Report 20571266 (Version 1)
Quarter: 2022Q1

REPORT INFORMATION
  Report Type: Spontaneous
  Country: PL (occurrence: PL)
  Receive Date: 20220309
  Receipt Date: 20220309
  Transmission Date: 20220423
  Serious: Yes (Hospitalization)
  Sender: FDA-Public Use
  Company Number: PL-LUPIN PHARMACEUTICALS INC.-2022-03188

PATIENT
  Age: 5 Year
  Sex: Female
  Weight: 21.4 kg

DRUGS (7)
  1. CEFTRIAXONE [Suspect]
     Active Substance: CEFTRIAXONE
     Indication: Post streptococcal glomerulonephritis
     Dosage: 70 MILLIGRAM/KILOGRAM
     Route: 065
  2. DEXTROSE [Concomitant]
     Active Substance: DEXTROSE
     Indication: Post streptococcal glomerulonephritis
     Dosage: 500 MILLILITER
     Route: 065
  3. SALINE [Concomitant]
     Active Substance: SODIUM CHLORIDE
     Indication: Post streptococcal glomerulonephritis
     Dosage: 500 MILLILITER
     Route: 065
  4. LEVOTHYROXINE SODIUM [Concomitant]
     Active Substance: LEVOTHYROXINE SODIUM
     Indication: Hypothyroidism
     Dosage: 12.5 MICROGRAM, QD
     Route: 065
  5. FUROSEMIDE [Concomitant]
     Active Substance: FUROSEMIDE
     Indication: Fluid retention
     Dosage: 50 MG
     Route: 065
  6. INSULIN NOS [Concomitant]
     Active Substance: INSULIN NOS
     Indication: Product used for unknown indication
     Dosage: 250 MILLILITER (GLUCOSE + INSULIN)
     Route: 065
  7. RASBURICASE [Concomitant]
     Active Substance: RASBURICASE
     Indication: Hyperuricaemia
     Dosage: 0.2 MILLIGRAM/KILOGRAM
     Route: 065

REACTIONS (1)
  - Pseudocholelithiasis [Recovered/Resolved]
